FAERS Safety Report 4813963-7 (Version None)
Quarter: 2005Q4

REPORT INFORMATION
  Report Type: 
  Country: None (occurrence: None)
  Receive Date: 20051028
  Receipt Date: 20041122
  Transmission Date: 20060501
  Serious: No
  Sender: FDA-Public Use
  Company Number: US-GLAXOSMITHKLINE-A0534836A

PATIENT

DRUGS (8)
  1. SEREVENT [Suspect]
     Indication: BRONCHITIS
     Dosage: 1PUFF TWICE PER DAY
     Route: 055
  2. ALBUTEROL [Concomitant]
  3. FLONASE [Concomitant]
  4. CAPTOPRIL [Concomitant]
  5. OXYCONTIN [Concomitant]
  6. HYDROCODONE [Concomitant]
  7. VICODIN [Concomitant]
  8. ALPRAZOLAM [Concomitant]

REACTIONS (10)
  - ANXIETY [None]
  - CHEST PAIN [None]
  - DIZZINESS [None]
  - HEADACHE [None]
  - NERVOUSNESS [None]
  - NIGHT SWEATS [None]
  - PALPITATIONS [None]
  - PRURITUS [None]
  - TREMOR [None]
  - VISUAL DISTURBANCE [None]
